FAERS Safety Report 25352800 (Version 1)
Quarter: 2025Q2

REPORT INFORMATION
  Report Type: Spontaneous
  Country: IE (occurrence: IE)
  Receive Date: 20250523
  Receipt Date: 20250523
  Transmission Date: 20250716
  Serious: Yes (Other)
  Sender: GILEAD
  Company Number: IE-GILEAD-2025-0713855

PATIENT
  Age: 33 Year
  Sex: Female

DRUGS (1)
  1. YESCARTA [Suspect]
     Active Substance: AXICABTAGENE CILOLEUCEL
     Indication: High-grade B-cell lymphoma
     Route: 065

REACTIONS (5)
  - Cytokine release syndrome [Unknown]
  - Neutropenia [Unknown]
  - Hypogammaglobulinaemia [Unknown]
  - T-lymphocyte count decreased [Unknown]
  - B-lymphocyte count decreased [Unknown]
